FAERS Safety Report 25210055 (Version 1)
Quarter: 2025Q2

REPORT INFORMATION
  Report Type: Spontaneous
  Country: US (occurrence: US)
  Receive Date: 20250417
  Receipt Date: 20250417
  Transmission Date: 20250717
  Serious: No
  Sender: ROCHE
  Company Number: US-ROCHE-10000253675

PATIENT
  Age: 34 Year

DRUGS (1)
  1. TAMIFLU [Suspect]
     Active Substance: OSELTAMIVIR PHOSPHATE
     Indication: Influenza
     Route: 065

REACTIONS (5)
  - Vomiting [Unknown]
  - Intentional product misuse [Unknown]
  - Retching [Unknown]
  - Product use complaint [Unknown]
  - Therapeutic product effect decreased [Unknown]
